FAERS Safety Report 18374206 (Version 1)
Quarter: 2020Q4

REPORT INFORMATION
  Report Type: Spontaneous
  Country: GR (occurrence: GR)
  Receive Date: 20201013
  Receipt Date: 20201013
  Transmission Date: 20210114
  Serious: Yes (Other)
  Sender: FDA-Public Use
  Company Number: GR-SA-2020SA277911

PATIENT

DRUGS (2)
  1. LEFLUNOMIDE. [Suspect]
     Active Substance: LEFLUNOMIDE
     Indication: RHEUMATOID ARTHRITIS
     Dosage: UNK
     Route: 065
  2. CORTICOSTEROID NOS [Concomitant]
     Active Substance: CORTICOSTEROID NOS
     Indication: RHEUMATOID ARTHRITIS
     Dosage: UNK

REACTIONS (11)
  - Brain abscess [Recovering/Resolving]
  - Headache [Recovering/Resolving]
  - Oedema peripheral [Recovering/Resolving]
  - Vertigo [Recovering/Resolving]
  - Dyscalculia [Recovering/Resolving]
  - Muscular weakness [Recovering/Resolving]
  - Pyrexia [Recovering/Resolving]
  - Aphasia [Recovering/Resolving]
  - Central nervous system lesion [Recovering/Resolving]
  - Hemianopia homonymous [Recovering/Resolving]
  - Inflammatory marker increased [Recovering/Resolving]
